FAERS Safety Report 8844218 (Version 1)
Quarter: 2012Q4

REPORT INFORMATION
  Report Type: 
  Country: US (occurrence: US)
  Receive Date: 20121016
  Receipt Date: 20121016
  Transmission Date: 20130627
  Serious: Yes (Hospitalization)
  Sender: FDA-Public Use
  Company Number: US-BAYER-2012-107715

PATIENT
  Age: 27 Year
  Sex: Female

DRUGS (6)
  1. YASMIN [Suspect]
  2. FOLIC ACID [Concomitant]
     Indication: BLOOD HOMOCYSTEINE INCREASED
  3. AMBIEN [Concomitant]
  4. LEXAPRO [Concomitant]
  5. DEMEROL [Concomitant]
     Indication: PAIN
  6. VICODIN [Concomitant]
     Indication: PAIN

REACTIONS (1)
  - Pulmonary embolism [None]
